FAERS Safety Report 9823006 (Version 2)
Quarter: 2014Q1

REPORT INFORMATION
  Report Type: Spontaneous
  Country: US (occurrence: US)
  Receive Date: 20140116
  Receipt Date: 20140116
  Transmission Date: 20141002
  Serious: Yes (Other)
  Sender: FDA-Public Use
  Company Number: PHEH2013US023167

PATIENT
  Sex: Female
  Weight: 73.9 kg

DRUGS (2)
  1. COARTEM [Suspect]
     Indication: LYME DISEASE
     Dosage: 4 UKN, BID ON MONDAY, TUESDAY AND WEDNESDAY IN THIRD WEEK OF THIRD AND FOURTH MEDICATION CYCLES
     Route: 048
  2. COARTEM [Suspect]
     Indication: BABESIOSIS

REACTIONS (2)
  - Neuropathy peripheral [Unknown]
  - Otitis media [Unknown]
